FAERS Safety Report 7110144-1 (Version None)
Quarter: 2010Q4

REPORT INFORMATION
  Report Type: 
  Country: None (occurrence: None)
  Receive Date: 20101118
  Receipt Date: 20101115
  Transmission Date: 20110411
  Serious: Yes (Death, Life-Threatening, Hospitalization)
  Sender: FDA-Public Use
  Company Number: CH-PFIZER INC-2010132503

PATIENT
  Age: 84 Year
  Sex: Male
  Weight: 81 kg

DRUGS (7)
  1. SORTIS [Suspect]
     Indication: HYPERCHOLESTEROLAEMIA
     Dosage: 40 MG, 1X/DAY
     Route: 048
     Dates: start: 20020101, end: 20100612
  2. NORFLOXACIN [Interacting]
     Indication: URINARY TRACT INFECTION
     Dosage: 400 MG, 2X/DAY
     Route: 048
     Dates: start: 20100609, end: 20100612
  3. ASPIRIN [Concomitant]
     Dosage: 100 MG, 1X/DAY
     Route: 048
  4. PLAVIX [Concomitant]
     Dosage: 75 MG, 1X/DAY
     Route: 048
  5. ZESTRIL [Concomitant]
     Dosage: 20 MG, 1X/DAY
     Route: 048
  6. CONCOR [Concomitant]
     Dosage: 7.5 MG, 1X/DAY
     Route: 048
  7. TOREM [Concomitant]
     Dosage: 10 MG, 1X/DAY
     Route: 048

REACTIONS (3)
  - CARDIAC FAILURE [None]
  - DRUG INTERACTION [None]
  - RHABDOMYOLYSIS [None]
